FAERS Safety Report 9432741 (Version 1)
Quarter: 2013Q3

REPORT INFORMATION
  Report Type: Spontaneous
  Country: FR (occurrence: FR)
  Receive Date: 20130731
  Receipt Date: 20130731
  Transmission Date: 20140515
  Serious: Yes (Hospitalization)
  Sender: FDA-Public Use
  Company Number: FR-BAYER-2013-089648

PATIENT
  Age: 38 Year
  Sex: Female

DRUGS (19)
  1. CIFLOX [Suspect]
     Indication: PNEUMONIA
     Dosage: 400 MG, BID
     Route: 042
     Dates: start: 20130405, end: 20130406
  2. VFEND [Suspect]
     Indication: PNEUMONIA
     Dosage: 300 MG, BID
     Route: 042
     Dates: start: 20130405, end: 20130410
  3. ACICLOVIR [Suspect]
     Indication: PNEUMONIA
     Dosage: 400 MG, TID
     Route: 042
     Dates: start: 20130405, end: 20130412
  4. MEROPENEM [Suspect]
     Indication: PNEUMONIA
     Dosage: 2 G, TID
     Route: 042
     Dates: start: 20130405, end: 20130412
  5. VANCOMYCIN [Suspect]
     Dosage: UNK
     Route: 042
     Dates: start: 20130405, end: 20130412
  6. BACTRIM [Suspect]
     Indication: PNEUMONIA
     Dosage: 1.2 G, TID
     Route: 042
     Dates: start: 20130405, end: 20130408
  7. AMIKACINE [Concomitant]
  8. CEFOTAXIME [Concomitant]
  9. TAZOBACTAM [Concomitant]
  10. PIPERACILLIN [Concomitant]
  11. DIGOXINE [Concomitant]
  12. TRINITRINE [Concomitant]
  13. FUROSEMIDE [Concomitant]
  14. ALPRAZOLAM [Concomitant]
  15. NEFOPAM HYDROCHLORIDE [Concomitant]
  16. PARACETAMOL [Concomitant]
  17. SUFENTANIL [Concomitant]
  18. PANTOPRAZOLE [Concomitant]
  19. NEUPOGEN [Concomitant]

REACTIONS (1)
  - Liver injury [Recovered/Resolved]
